FAERS Safety Report 22094318 (Version 2)
Quarter: 2023Q1

REPORT INFORMATION
  Report Type: Report from Study
  Country: KR (occurrence: KR)
  Receive Date: 20230314
  Receipt Date: 20230321
  Transmission Date: 20230417
  Serious: Yes (Hospitalization)
  Sender: FDA-Public Use
  Company Number: KR-ABBVIE-4315640

PATIENT
  Age: 27 Year
  Sex: Male
  Weight: 65.8 kg

DRUGS (9)
  1. PLACEBO [Suspect]
     Active Substance: UNSPECIFIED INGREDIENT
     Indication: Dermatitis atopic
     Route: 048
     Dates: start: 20191213, end: 20200406
  2. PIMECROLIMUS [Concomitant]
     Active Substance: PIMECROLIMUS
     Indication: Dermatitis atopic
     Dosage: 1 PERCENT - 1 APPLICATION
     Route: 061
     Dates: start: 20220429
  3. HYDROCORTISONE [Concomitant]
     Active Substance: HYDROCORTISONE
     Indication: Dermatitis atopic
     Dosage: 2.5% 50G - 1 APPLICATION
     Route: 061
     Dates: start: 20220429
  4. TACROLIMUS [Concomitant]
     Active Substance: TACROLIMUS
     Indication: Dermatitis atopic
     Dosage: 0.306MG/G
     Route: 061
     Dates: start: 20220429
  5. CUTEM GENOBARRIER [Concomitant]
     Indication: Dry skin prophylaxis
     Dosage: 1 APPLICATION
     Route: 061
     Dates: start: 20220822
  6. BEPOTASTINE BESYLATE [Concomitant]
     Active Substance: BEPOTASTINE BESYLATE
     Indication: Dermatitis atopic
     Route: 048
     Dates: start: 20230202
  7. BACILLUS SUBTILIS-ENTEROCOCCUS FAECIUM CULTURE [Concomitant]
     Indication: Prophylaxis
     Route: 048
     Dates: start: 20230202
  8. LEVOCETIRIZINE HYDROCHLORIDE [Concomitant]
     Active Substance: LEVOCETIRIZINE HYDROCHLORIDE
     Indication: Dermatitis atopic
     Route: 048
     Dates: start: 20230202
  9. UPADACITINIB [Suspect]
     Active Substance: UPADACITINIB
     Indication: Dermatitis atopic
     Route: 048
     Dates: start: 20200407, end: 20230222

REACTIONS (1)
  - Bone tuberculosis [Not Recovered/Not Resolved]

NARRATIVE: CASE EVENT DATE: 20230202
